FAERS Safety Report 19397990 (Version 2)
Quarter: 2021Q3

REPORT INFORMATION
  Report Type: Spontaneous
  Country: US (occurrence: US)
  Receive Date: 20210610
  Receipt Date: 20210709
  Transmission Date: 20211014
  Serious: No
  Sender: FDA-Public Use
  Company Number: US-LEADINGPHARMA-US-2021LEASPO00188

PATIENT

DRUGS (1)
  1. LORAZEPAM TABLETS USP [Suspect]
     Active Substance: LORAZEPAM
     Indication: ANXIETY
     Route: 065

REACTIONS (8)
  - Heart rate increased [Unknown]
  - Insomnia [Unknown]
  - Angiopathy [Unknown]
  - Drug ineffective [Unknown]
  - Confusional state [Unknown]
  - Feeling of body temperature change [Unknown]
  - Anxiety [Unknown]
  - Product substitution issue [Unknown]
